FAERS Safety Report 9147373 (Version 1)
Quarter: 2013Q1

REPORT INFORMATION
  Report Type: Report from Study
  Country: EE (occurrence: EE)
  Receive Date: 20130307
  Receipt Date: 20130307
  Transmission Date: 20140127
  Serious: Yes (Death, Other)
  Sender: FDA-Public Use
  Company Number: EE-GLAXOSMITHKLINE-B0600913A

PATIENT
  Age: 79 Year
  Sex: Female
  Weight: 88.6 kg

DRUGS (6)
  1. ROSIGLITAZONE [Suspect]
     Indication: TYPE 2 DIABETES MELLITUS
     Route: 048
     Dates: start: 20020417, end: 20081207
  2. METFORMIN [Concomitant]
     Indication: TYPE 2 DIABETES MELLITUS
     Dosage: 2550MG PER DAY
     Route: 048
     Dates: start: 20020125, end: 20091022
  3. GLIBENESE [Concomitant]
     Indication: TYPE 2 DIABETES MELLITUS
     Dosage: 5MG PER DAY
     Route: 048
     Dates: start: 20081208, end: 20091022
  4. PLENDIL [Concomitant]
     Indication: HYPERTENSION
     Dosage: 5MG PER DAY
     Route: 048
     Dates: start: 20011123, end: 20091022
  5. LOSARTAN [Concomitant]
     Indication: HYPERTENSION
     Dosage: 50MG PER DAY
     Route: 048
     Dates: start: 20080421, end: 20091022
  6. HYPOTHIAZIDE [Concomitant]
     Indication: HYPERTENSION
     Dosage: 25MG PER DAY
     Route: 048
     Dates: start: 20021009, end: 20091022

REACTIONS (3)
  - Uterine leiomyosarcoma [Fatal]
  - Metastases to central nervous system [Unknown]
  - Brain oedema [Unknown]
